FAERS Safety Report 17066062 (Version 4)
Quarter: 2020Q1

REPORT INFORMATION
  Report Type: Spontaneous
  Country: FR (occurrence: FR)
  Receive Date: 20191122
  Receipt Date: 20200227
  Transmission Date: 20200409
  Serious: Yes (Hospitalization, Other)
  Sender: FDA-Public Use
  Company Number: FR-MYLANLABS-2019M1112458

PATIENT
  Sex: Female

DRUGS (9)
  1. ORACILLINE                         /00001805/ [Suspect]
     Active Substance: PENICILLIN V BENZATHINE
     Indication: ANTIBIOTIC PROPHYLAXIS
     Dosage: 2 DOSAGE FORM IN A DAY (1,000,000 IU/10 ML)
     Route: 048
     Dates: start: 20161220
  2. CORTANCYL [Suspect]
     Active Substance: PREDNISONE
     Dosage: 20 MILLIGRAM IN A DAY
     Route: 065
     Dates: start: 201701
  3. CORTANCYL [Suspect]
     Active Substance: PREDNISONE
     Dosage: 80 MG IN A DAY
     Route: 065
     Dates: start: 201701
  4. CORTANCYL [Suspect]
     Active Substance: PREDNISONE
     Indication: THROMBOTIC THROMBOCYTOPENIC PURPURA
     Dosage: 80 MG IN A DAY
     Route: 065
     Dates: start: 20161118
  5. KARDEGIC [Suspect]
     Active Substance: ASPIRIN DL-LYSINE
     Indication: PROPHYLAXIS
     Dosage: 1 DF, ONCE DAILY (QD) (STRENGTH 75 MG)
     Route: 065
     Dates: start: 20161126
  6. ADRENALINE                         /00003901/ [Concomitant]
     Active Substance: EPINEPHRINE
     Indication: PRODUCT USED FOR UNKNOWN INDICATION
     Dosage: UNK
  7. SPECIAFOLDINE [Suspect]
     Active Substance: FOLIC ACID
     Indication: VITAMIN SUPPLEMENTATION
     Dosage: 1 DF, ONCE DAILY (QD) (STRENGTH 5 MG)
     Route: 065
     Dates: start: 20161121
  8. PANTOPRAZOLE [Suspect]
     Active Substance: PANTOPRAZOLE
     Indication: PROPHYLAXIS AGAINST GASTROINTESTINAL ULCER
     Dosage: 20 MG, ONCE DAILY (QD)
     Route: 065
     Dates: start: 20161121
  9. MABTHERA [Suspect]
     Active Substance: RITUXIMAB
     Indication: THROMBOTIC THROMBOCYTOPENIC PURPURA
     Dosage: 2 DF, ONCE/SINGLE (STRENGTH 500 MG)
     Route: 042
     Dates: start: 20161207, end: 20161207

REACTIONS (5)
  - Thrombocytopenia [Recovered/Resolved]
  - Premature delivery [Unknown]
  - Maternal exposure during pregnancy [Recovered/Resolved]
  - Pre-eclampsia [Recovered/Resolved]
  - Off label use [Unknown]

NARRATIVE: CASE EVENT DATE: 20161220
